FAERS Safety Report 9399322 (Version 1)
Quarter: 2013Q3

REPORT INFORMATION
  Report Type: Spontaneous
  Country: US (occurrence: US)
  Receive Date: 20130715
  Receipt Date: 20130715
  Transmission Date: 20140515
  Serious: No
  Sender: FDA-Public Use
  Company Number: US-BAYER-2013-085161

PATIENT
  Sex: Male
  Weight: 84.35 kg

DRUGS (3)
  1. BETASERON [Suspect]
     Dosage: 0.3 MG, UNK
  2. CENTRUM [Concomitant]
  3. VITAMIN C [Concomitant]
     Dosage: 500 MG, UNK

REACTIONS (1)
  - Hepatic enzyme increased [Unknown]
